FAERS Safety Report 21830796 (Version 1)
Quarter: 2023Q1

REPORT INFORMATION
  Report Type: Spontaneous
  Country: US (occurrence: None)
  Receive Date: 20230105
  Receipt Date: 20230105
  Transmission Date: 20230418
  Serious: Yes (Hospitalization)
  Sender: FDA-Public Use
  Company Number: None

PATIENT
  Age: 80 Year
  Sex: Male
  Weight: 65.25 kg

DRUGS (5)
  1. METHYLPREDNISOLONE [Suspect]
     Active Substance: METHYLPREDNISOLONE
     Indication: Swelling
     Dosage: 21 TABLETS ORAL 6/DAY TAPERING?
     Route: 048
  2. PYGEUM [Concomitant]
     Active Substance: PYGEUM
  3. FISH OIL [Concomitant]
     Active Substance: FISH OIL
  4. VITAMIN D [Concomitant]
     Active Substance: VITAMIN D NOS
  5. VITAMINS [Concomitant]
     Active Substance: VITAMINS

REACTIONS (4)
  - Hypertension [None]
  - Ventricular extrasystoles [None]
  - Supraventricular extrasystoles [None]
  - Blood glucose increased [None]

NARRATIVE: CASE EVENT DATE: 20230103
